FAERS Safety Report 9203716 (Version 1)
Quarter: 2013Q2

REPORT INFORMATION
  Report Type: Spontaneous
  Country: BR (occurrence: BR)
  Receive Date: 20130402
  Receipt Date: 20130402
  Transmission Date: 20140414
  Serious: Yes (Hospitalization)
  Sender: FDA-Public Use
  Company Number: PHHY2013BR031087

PATIENT
  Age: 84 Year
  Sex: Male

DRUGS (2)
  1. EXELON PATCH [Suspect]
     Indication: MEMORY IMPAIRMENT
     Dosage: 4.6 MG, DAILY
     Route: 062
  2. EXELON PATCH [Suspect]
     Dosage: 4.6 MG, UNK

REACTIONS (7)
  - Malaise [Recovering/Resolving]
  - Dehydration [Recovered/Resolved]
  - Fatigue [Recovering/Resolving]
  - Psychiatric symptom [Recovering/Resolving]
  - Pain in extremity [Recovering/Resolving]
  - Dizziness [Recovering/Resolving]
  - Incorrect route of drug administration [Unknown]
